FAERS Safety Report 10159122 (Version 3)
Quarter: 2014Q2

REPORT INFORMATION
  Report Type: Report from Study
  Country: GB (occurrence: GB)
  Receive Date: 20140508
  Receipt Date: 20140515
  Transmission Date: 20141212
  Serious: Yes (Hospitalization, Other)
  Sender: FDA-Public Use
  Company Number: GB-ROCHE-1183758

PATIENT
  Age: 53 Year
  Sex: Female
  Weight: 76.8 kg

DRUGS (10)
  1. OBINUTUZUMAB [Suspect]
     Indication: B-CELL LYMPHOMA
     Dosage: DOSE LAST TAKEN-1000MG/ML, VOLUME LAST TAKEN-250ML,MOST RECENT DOSE PRIOR TO SAE ON 17/MAY/2013.
     Route: 042
     Dates: start: 20120328
  2. BENDAMUSTINE [Suspect]
     Indication: B-CELL LYMPHOMA
     Dosage: LAST DOSE TAKEN 160MG, MOST RECENT DOSE PRIOR TO SAE-14/AUG/2012.
     Route: 042
     Dates: start: 20120329, end: 20120816
  3. CHLORPHENAMINE [Concomitant]
     Route: 065
     Dates: start: 20120328
  4. PARACETAMOL [Concomitant]
     Indication: PREMEDICATION
     Route: 065
     Dates: start: 20120328
  5. PARACETAMOL [Concomitant]
     Indication: FEBRILE NEUTROPENIA
     Route: 065
     Dates: start: 20130122
  6. PARACETAMOL [Concomitant]
     Indication: HEADACHE
     Route: 065
     Dates: start: 20130522, end: 20130523
  7. METOCLOPRAMIDE [Concomitant]
     Indication: NAUSEA
     Route: 065
     Dates: start: 20120328
  8. ONDANSETRON [Concomitant]
     Indication: NAUSEA
     Route: 065
     Dates: start: 20130328
  9. ONDANSETRON [Concomitant]
     Route: 065
     Dates: start: 20130330
  10. FUSIDIC ACID [Concomitant]
     Indication: CONJUNCTIVITIS
     Route: 065
     Dates: start: 201304, end: 201304

REACTIONS (3)
  - Febrile neutropenia [Recovered/Resolved]
  - Gastroenteritis [Recovered/Resolved]
  - Neutropenia [Recovered/Resolved with Sequelae]
